FAERS Safety Report 20847859 (Version 2)
Quarter: 2022Q2

REPORT INFORMATION
  Report Type: Spontaneous
  Country: CH (occurrence: CH)
  Receive Date: 20220519
  Receipt Date: 20220629
  Transmission Date: 20220721
  Serious: Yes (Hospitalization, Other)
  Sender: FDA-Public Use
  Company Number: CH-ALKEM LABORATORIES LIMITED-CH-ALKEM-2022-04571

PATIENT
  Age: 59 Year
  Sex: Female

DRUGS (3)
  1. TIZANIDINE [Suspect]
     Active Substance: TIZANIDINE
     Indication: Back pain
     Dosage: 14 MILLIGRAM PER DAY
     Route: 065
  2. DICLOFENAC POTASSIUM [Suspect]
     Active Substance: DICLOFENAC POTASSIUM
     Indication: Back pain
     Dosage: 50 MILLIGRAM
     Route: 065
  3. VIOXX [Suspect]
     Active Substance: ROFECOXIB
     Indication: Back pain
     Dosage: 25 MILLIGRAM FOR 3 DAYS
     Route: 065

REACTIONS (5)
  - Cardiac failure acute [Recovered/Resolved]
  - Sinus bradycardia [Recovered/Resolved]
  - Gastrointestinal disorder [Unknown]
  - Hepatic enzyme increased [Recovered/Resolved]
  - Drug interaction [Unknown]
